APPROVED DRUG PRODUCT: NYSTATIN AND TRIAMCINOLONE ACETONIDE
Active Ingredient: NYSTATIN; TRIAMCINOLONE ACETONIDE
Strength: 100,000 UNITS/GM;0.1%
Dosage Form/Route: OINTMENT;TOPICAL
Application: A207217 | Product #001 | TE Code: AT
Applicant: EPIC PHARMA LLC
Approved: Aug 4, 2017 | RLD: No | RS: No | Type: RX